FAERS Safety Report 7337756-4 (Version None)
Quarter: 2011Q1

REPORT INFORMATION
  Report Type: 
  Country: None (occurrence: None)
  Receive Date: 20110224
  Receipt Date: 20110215
  Transmission Date: 20110831
  Serious: Yes (Hospitalization)
  Sender: FDA-Public Use
  Company Number: 2010005668

PATIENT
  Age: 76 Year
  Sex: Male
  Weight: 64.9 kg

DRUGS (6)
  1. CLARITHROMYCIN [Concomitant]
  2. ERLOTINIB (ERLOTINIB) (TABLET) (ERLOTINIB) [Suspect]
     Indication: LUNG ADENOCARCINOMA
     Dosage: 150 MG, QD, ORAL
     Route: 048
     Dates: start: 20081201
  3. LOXONIN (LOXOPROFEN SODIUM) [Concomitant]
  4. DIOVAN [Concomitant]
  5. MUCOSTA (REBAMIPIDE) [Concomitant]
  6. FLACERIC (BENPROPERINE PHOSPHATE) [Concomitant]

REACTIONS (1)
  - HAEMOTHORAX [None]
